FAERS Safety Report 7005649-8 (Version None)
Quarter: 2010Q3

REPORT INFORMATION
  Report Type: 
  Country: None (occurrence: None)
  Receive Date: 20100921
  Receipt Date: 20100914
  Transmission Date: 20110219
  Serious: Yes (Congenital Anomaly)
  Sender: FDA-Public Use
  Company Number: B0610144A

PATIENT
  Sex: Female
  Weight: 0.79 kg

DRUGS (4)
  1. LAMOTRIGINE [Suspect]
  2. LEVETIRACETAM [Suspect]
  3. FOLIC ACID [Concomitant]
  4. LABETALOL HCL [Concomitant]
     Indication: PRE-ECLAMPSIA

REACTIONS (2)
  - CENTRAL NERVOUS SYSTEM LESION [None]
  - EXOMPHALOS [None]
